FAERS Safety Report 16736045 (Version 1)
Quarter: 2019Q3

REPORT INFORMATION
  Report Type: Spontaneous
  Country: US (occurrence: US)
  Receive Date: 20190823
  Receipt Date: 20190823
  Transmission Date: 20191005
  Serious: No
  Sender: FDA-Public Use
  Company Number: US-SA-2019SA200789

PATIENT
  Age: 23 Year
  Sex: Male

DRUGS (1)
  1. KEVZARA [Suspect]
     Active Substance: SARILUMAB
     Indication: SYSTEMIC SCLERODERMA
     Dosage: UNK
     Dates: start: 20190722

REACTIONS (1)
  - Product use in unapproved indication [Unknown]
